FAERS Safety Report 6173692-7 (Version None)
Quarter: 2009Q2

REPORT INFORMATION
  Report Type: 
  Country: None (occurrence: None)
  Receive Date: 20090429
  Receipt Date: 20090429
  Transmission Date: 20091009
  Serious: No
  Sender: FDA-Public Use
  Company Number: None

PATIENT

DRUGS (2)
  1. ACTIVELLA [Suspect]
     Dosage: 1 EITS .5 NE QD PO
     Route: 048
  2. ACTIVELLA [Suspect]
     Dosage: .5 EST .1 NE

REACTIONS (2)
  - DRUG DISPENSING ERROR [None]
  - PRODUCT LABEL CONFUSION [None]
